FAERS Safety Report 17908232 (Version 1)
Quarter: 2020Q2

REPORT INFORMATION
  Report Type: Other
  Country: CA (occurrence: CA)
  Receive Date: 20200617
  Receipt Date: 20200617
  Transmission Date: 20200714
  Serious: Yes (Other)
  Sender: FDA-Public Use
  Company Number: CA-BECTON DICKINSON-2020BDN00149

PATIENT
  Sex: Female
  Weight: 68 kg

DRUGS (8)
  1. ACETAMINOPHEN. [Concomitant]
     Active Substance: ACETAMINOPHEN
  2. FOLIC ACID. [Concomitant]
     Active Substance: FOLIC ACID
  3. DIPHENHYDRAMINE HYDROCHLORIDE. [Concomitant]
     Active Substance: DIPHENHYDRAMINE HYDROCHLORIDE
  4. METHYLPREDNISOLONE NOS [Concomitant]
     Active Substance: METHYLPREDNISOLONE
  5. CHLORAPREP [Suspect]
     Active Substance: CHLORHEXIDINE GLUCONATE\ISOPROPYL ALCOHOL
     Route: 061
  6. RITUXIMAB GP2013 [Suspect]
     Active Substance: RITUXIMAB
     Dosage: UNK
     Route: 042
  7. METHOTREXATE. [Suspect]
     Active Substance: METHOTREXATE
     Dosage: 1 DOSAGE UNITS, 1X/WEEK
  8. RITUXIMAB GP2013 [Suspect]
     Active Substance: RITUXIMAB
     Indication: RHEUMATOID ARTHRITIS
     Dosage: 1000 MG
     Route: 042

REACTIONS (10)
  - Headache [Unknown]
  - Nasopharyngitis [Unknown]
  - Pruritus [Unknown]
  - Skin infection [Unknown]
  - Erythema [Unknown]
  - Hot flush [Unknown]
  - Infusion related reaction [Unknown]
  - Arthralgia [Unknown]
  - Menstruation irregular [Unknown]
  - Drug ineffective [Unknown]
